FAERS Safety Report 6696798-2 (Version None)
Quarter: 2010Q2

REPORT INFORMATION
  Report Type: 
  Country: None (occurrence: None)
  Receive Date: 20100426
  Receipt Date: 20100414
  Transmission Date: 20101027
  Serious: Yes (Hospitalization, Other)
  Sender: FDA-Public Use
  Company Number: AR-BAYER-201013597LA

PATIENT
  Age: 38 Year
  Sex: Female

DRUGS (2)
  1. MIRENA [Suspect]
     Indication: MENORRHAGIA
     Dosage: FREQUENCY: CONTINUOUS
     Route: 015
     Dates: start: 20090701
  2. SINTROM [Concomitant]
     Indication: ISCHAEMIC STROKE
     Route: 048
     Dates: start: 20100301

REACTIONS (1)
  - ISCHAEMIC STROKE [None]
